FAERS Safety Report 7325729-7 (Version None)
Quarter: 2011Q1

REPORT INFORMATION
  Report Type: 
  Country: None (occurrence: None)
  Receive Date: 20110302
  Receipt Date: 20110117
  Transmission Date: 20110831
  Serious: Yes (Hospitalization)
  Sender: FDA-Public Use
  Company Number: FR-BAYER-2011-017581

PATIENT
  Sex: Male
  Weight: 75 kg

DRUGS (3)
  1. NAPROXEN SODIUM [Suspect]
     Indication: BACK PAIN
     Dosage: 550 MG, UNK
     Dates: start: 20110116
  2. NAPROXEN SODIUM [Suspect]
     Dosage: UNK UNK, PRN
     Route: 048
     Dates: start: 20090101
  3. INIPOMP [Concomitant]

REACTIONS (5)
  - HOT FLUSH [None]
  - PARAESTHESIA [None]
  - ANAPHYLACTIC SHOCK [None]
  - MALAISE [None]
  - LOSS OF CONSCIOUSNESS [None]
